FAERS Safety Report 6662893-7 (Version None)
Quarter: 2010Q2

REPORT INFORMATION
  Report Type: 
  Country: None (occurrence: None)
  Receive Date: 20100401
  Receipt Date: 20100318
  Transmission Date: 20101027
  Serious: Yes (Other)
  Sender: FDA-Public Use
  Company Number: IL-RANBAXY-2010RR-32767

PATIENT
  Age: 71 Year
  Sex: Male

DRUGS (8)
  1. SIMVASTATIN [Suspect]
  2. ENALAPRIL MALEATE [Concomitant]
  3. VITAMIN E [Concomitant]
  4. LECITHIN [Concomitant]
  5. Q10 CO-ENZYME [Concomitant]
  6. GLUCOSAMINE [Concomitant]
  7. MINOCIN [Concomitant]
  8. GARLIC AND PARSLEY OIL [Concomitant]

REACTIONS (2)
  - DERMATITIS [None]
  - DERMATITIS PSORIASIFORM [None]
